FAERS Safety Report 25352476 (Version 1)
Quarter: 2025Q2

REPORT INFORMATION
  Report Type: Spontaneous
  Country: GB (occurrence: GB)
  Receive Date: 20250523
  Receipt Date: 20250523
  Transmission Date: 20250717
  Serious: Yes (Other)
  Sender: SANDOZ
  Company Number: GB-002147023-NVSC2025GB080540

PATIENT
  Age: 85 Year
  Sex: Female

DRUGS (2)
  1. RIVASTIGMINE [Suspect]
     Active Substance: RIVASTIGMINE
     Route: 062
  2. RIVASTIGMINE [Suspect]
     Active Substance: RIVASTIGMINE
     Indication: Dementia Alzheimer^s type
     Route: 062

REACTIONS (6)
  - Epilepsy [Unknown]
  - Seizure [Unknown]
  - Secretion discharge [Unknown]
  - Hypophagia [Unknown]
  - Salivary hypersecretion [Unknown]
  - Product availability issue [Unknown]
